FAERS Safety Report 5851812-9 (Version None)
Quarter: 2008Q3

REPORT INFORMATION
  Report Type: 
  Country: None (occurrence: None)
  Receive Date: 20080820
  Receipt Date: 20080814
  Transmission Date: 20090109
  Serious: Yes (Disabling, Other)
  Sender: FDA-Public Use
  Company Number: JP-ABBOTT-08P-087-0471314-00

PATIENT
  Age: 1 Year
  Sex: Male

DRUGS (4)
  1. SEVOFLURANE [Suspect]
     Indication: ANAESTHESIA PROCEDURE
     Route: 055
  2. ATROPINE [Concomitant]
     Indication: DRUG USE FOR UNKNOWN INDICATION
  3. NITROUS OXIDE W/ OXYGEN [Concomitant]
     Indication: DRUG USE FOR UNKNOWN INDICATION
  4. LIDOCAINE HYDROCHLORIDE [Concomitant]
     Indication: DRUG USE FOR UNKNOWN INDICATION

REACTIONS (1)
  - RHABDOMYOLYSIS [None]
